FAERS Safety Report 20600994 (Version 1)
Quarter: 2022Q1

REPORT INFORMATION
  Report Type: Spontaneous
  Country: US (occurrence: US)
  Receive Date: 20220316
  Receipt Date: 20220316
  Transmission Date: 20220424
  Serious: No
  Sender: FDA-Public Use
  Company Number: US-ASTELLAS-2021US044134

PATIENT
  Age: 88 Year
  Sex: Female

DRUGS (1)
  1. CRESEMBA [Suspect]
     Active Substance: ISAVUCONAZONIUM SULFATE
     Indication: Product used for unknown indication
     Route: 065

REACTIONS (3)
  - Diarrhoea [Unknown]
  - Incorrect dose administered [Unknown]
  - Off label use [Unknown]
